FAERS Safety Report 9636797 (Version 1)
Quarter: 2013Q4

REPORT INFORMATION
  Report Type: Spontaneous
  Country: US (occurrence: US)
  Receive Date: 20131022
  Receipt Date: 20131022
  Transmission Date: 20140711
  Serious: No
  Sender: FDA-Public Use
  Company Number: US-009507513-1310USA006323

PATIENT
  Age: 57 Year
  Sex: Male
  Weight: 91.16 kg

DRUGS (2)
  1. VICTRELIS [Suspect]
     Indication: HEPATITIS C
     Dosage: 800 MG, TID
     Route: 048
     Dates: start: 20130915
  2. PEGASYS [Suspect]
     Dosage: UNK
     Dates: start: 20130915

REACTIONS (1)
  - Inappropriate schedule of drug administration [Unknown]
